FAERS Safety Report 19845365 (Version 2)
Quarter: 2021Q3

REPORT INFORMATION
  Report Type: Spontaneous
  Country: US (occurrence: US)
  Receive Date: 20210916
  Receipt Date: 20210927
  Transmission Date: 20211014
  Serious: Yes (Other)
  Sender: FDA-Public Use
  Company Number: US-TEVA-2021-US-1952553

PATIENT
  Age: 18 Year
  Sex: Female

DRUGS (5)
  1. LACTATED RINGERS AND DEXTROSE SOLUTION [Suspect]
     Active Substance: CALCIUM CHLORIDE\DEXTROSE\DEXTROSE MONOHYDRATE\POTASSIUM CHLORIDE\SODIUM CHLORIDE\SODIUM LACTATE
     Indication: DEHYDRATION
     Route: 042
  2. ONDANSETRON [Suspect]
     Active Substance: ONDANSETRON
     Indication: HYPEREMESIS GRAVIDARUM
     Route: 042
  3. PROMETHAZINE [Suspect]
     Active Substance: PROMETHAZINE HYDROCHLORIDE
     Indication: HYPEREMESIS GRAVIDARUM
     Route: 042
  4. THIAMINE. [Suspect]
     Active Substance: THIAMINE
     Indication: WERNICKE^S ENCEPHALOPATHY
     Dosage: 600 MILLIGRAM DAILY;
     Route: 042
  5. THIAMINE. [Suspect]
     Active Substance: THIAMINE
     Indication: WERNICKE^S ENCEPHALOPATHY
     Dosage: 100 MILLIGRAM DAILY;
     Route: 048

REACTIONS (2)
  - Foetal death [Unknown]
  - Maternal exposure during pregnancy [Unknown]
